FAERS Safety Report 20146104 (Version 1)
Quarter: 2021Q4

REPORT INFORMATION
  Report Type: Spontaneous
  Country: AT (occurrence: AT)
  Receive Date: 20211203
  Receipt Date: 20211203
  Transmission Date: 20220304
  Serious: Yes (Hospitalization)
  Sender: FDA-Public Use
  Company Number: AT-EMA-20211117-AUTODUP-1637105327988

PATIENT
  Sex: Male

DRUGS (11)
  1. MEMANTINE HYDROCHLORIDE [Suspect]
     Active Substance: MEMANTINE HYDROCHLORIDE
  2. LEVOMEPROMAZINE [Suspect]
     Active Substance: LEVOMEPROMAZINE
  3. CLOPIDOGREL BISULFATE [Suspect]
     Active Substance: CLOPIDOGREL BISULFATE
  4. QUETIAPINE FUMARATE [Suspect]
     Active Substance: QUETIAPINE FUMARATE
     Indication: Mixed dementia
     Dosage: 25 MG
  5. CYANOCOBALAMIN [Suspect]
     Active Substance: CYANOCOBALAMIN
  6. GLICLAZIDE [Suspect]
     Active Substance: GLICLAZIDE
  7. FOLIC ACID [Suspect]
     Active Substance: FOLIC ACID
  8. VALSARTAN [Suspect]
     Active Substance: VALSARTAN
  9. PIOGLITAZONE [Suspect]
     Active Substance: PIOGLITAZONE
  10. ALOGLIPTIN BENZOATE\METFORMIN HYDROCHLORIDE [Suspect]
     Active Substance: ALOGLIPTIN BENZOATE\METFORMIN HYDROCHLORIDE
  11. SOLIFENACIN\TAMSULOSIN [Suspect]
     Active Substance: SOLIFENACIN\TAMSULOSIN

REACTIONS (2)
  - Fall [Unknown]
  - Off label use [Unknown]
